FAERS Safety Report 5536122-1 (Version None)
Quarter: 2007Q4

REPORT INFORMATION
  Report Type: 
  Country: None (occurrence: None)
  Receive Date: 20071206
  Receipt Date: 20071130
  Transmission Date: 20080405
  Serious: Yes (Hospitalization, Other)
  Sender: FDA-Public Use
  Company Number: GB-BRISTOL-MYERS SQUIBB COMPANY-13626460

PATIENT
  Age: 64 Year
  Sex: Male

DRUGS (3)
  1. ERBITUX [Suspect]
     Indication: COLORECTAL CANCER
     Route: 041
     Dates: start: 20060317, end: 20061214
  2. OXALIPLATIN [Concomitant]
     Indication: COLORECTAL CANCER
  3. FLUOROURACIL [Concomitant]
     Indication: COLORECTAL CANCER
     Route: 041

REACTIONS (6)
  - CATHETER RELATED INFECTION [None]
  - DEEP VEIN THROMBOSIS [None]
  - HYPERSENSITIVITY [None]
  - LUNG DISORDER [None]
  - PULMONARY EMBOLISM [None]
  - STAPHYLOCOCCAL INFECTION [None]
